FAERS Safety Report 6704401-8 (Version None)
Quarter: 2010Q2

REPORT INFORMATION
  Report Type: 
  Country: None (occurrence: None)
  Receive Date: 20100430
  Receipt Date: 20100427
  Transmission Date: 20101027
  Serious: Yes (Hospitalization)
  Sender: FDA-Public Use
  Company Number: CA-BRISTOL-MYERS SQUIBB COMPANY-15008980

PATIENT
  Age: 78 Year
  Sex: Male

DRUGS (4)
  1. ERBITUX [Suspect]
     Indication: LIP AND/OR ORAL CAVITY CANCER
     Route: 042
     Dates: start: 20100129
  2. RADIATION THERAPY [Suspect]
     Indication: LIP AND/OR ORAL CAVITY CANCER
  3. ACETYLSALICYLIC ACID [Suspect]
  4. PLAVIX [Concomitant]

REACTIONS (2)
  - DUODENAL ULCER PERFORATION [None]
  - GASTROINTESTINAL HAEMORRHAGE [None]
